FAERS Safety Report 18677436 (Version 9)
Quarter: 2021Q2

REPORT INFORMATION
  Report Type: Spontaneous
  Country: AR (occurrence: AR)
  Receive Date: 20201229
  Receipt Date: 20210419
  Transmission Date: 20210717
  Serious: Yes (Other)
  Sender: FDA-Public Use
  Company Number: AR-MYLANLABS-2020M1060643

PATIENT
  Age: 17 Year
  Sex: Male

DRUGS (8)
  1. LORAZEPAM. [Concomitant]
     Active Substance: LORAZEPAM
     Dosage: 10 MILLIGRAM, QD
  2. CLONIDINE. [Concomitant]
     Active Substance: CLONIDINE
     Dosage: 0.4 MILLIGRAM, QD
  3. TOPIRAMATE. [Concomitant]
     Active Substance: TOPIRAMATE
     Dosage: 200 MILLIGRAM, QD
  4. LAPENAX [Suspect]
     Active Substance: CLOZAPINE
     Indication: DEVELOPMENTAL DELAY
     Dosage: 400 MILLIGRAM
     Dates: start: 20170815
  5. LAPENAX [Suspect]
     Active Substance: CLOZAPINE
     Indication: MENTAL DISORDER
     Dosage: 300 MILLIGRAM, QD
  6. LEVOMEPROMAZINE [Concomitant]
     Active Substance: LEVOMEPROMAZINE
     Dosage: UNK
  7. AMITRIPTYLINE                      /00002202/ [Concomitant]
     Active Substance: AMITRIPTYLINE
     Dosage: 100 MILLIGRAM, QD
  8. AMITRIPTYLINE                      /00002202/ [Concomitant]
     Active Substance: AMITRIPTYLINE
     Dosage: UNK

REACTIONS (5)
  - Leukopenia [Recovered/Resolved]
  - Schizophrenia [Unknown]
  - Platelet count decreased [Unknown]
  - Neutropenia [Recovered/Resolved]
  - Off label use [Unknown]

NARRATIVE: CASE EVENT DATE: 20170815
